FAERS Safety Report 14535519 (Version 1)
Quarter: 2018Q1

REPORT INFORMATION
  Report Type: Spontaneous
  Country: GB (occurrence: GB)
  Receive Date: 20180215
  Receipt Date: 20180215
  Transmission Date: 20180509
  Serious: Yes (Death, Hospitalization, Other)
  Sender: FDA-Public Use
  Company Number: GB-009507513-1802GBR007639

PATIENT
  Age: 57 Year
  Sex: Female
  Weight: 44.7 kg

DRUGS (2)
  1. KEYTRUDA [Suspect]
     Active Substance: PEMBROLIZUMAB
     Indication: LUNG NEOPLASM MALIGNANT
     Dosage: UNK, TIW
     Route: 042
     Dates: start: 20170201, end: 20170201
  2. KEYTRUDA [Suspect]
     Active Substance: PEMBROLIZUMAB
     Indication: PALLIATIVE CARE

REACTIONS (7)
  - Death [Fatal]
  - Dyspnoea [Unknown]
  - Neoplasm malignant [Unknown]
  - Infection [Unknown]
  - Malaise [Unknown]
  - Sepsis [Unknown]
  - Condition aggravated [Unknown]

NARRATIVE: CASE EVENT DATE: 201702
